FAERS Safety Report 13256575 (Version 1)
Quarter: 2017Q1

REPORT INFORMATION
  Report Type: Spontaneous
  Country: US (occurrence: US)
  Receive Date: 20170220
  Receipt Date: 20170220
  Transmission Date: 20170428
  Serious: Yes (Disabling)
  Sender: FDA-Public Use
  Company Number: None

PATIENT
  Age: 62 Year
  Sex: Female
  Weight: 65.25 kg

DRUGS (1)
  1. CHLORHEXADINE [Suspect]
     Active Substance: CHLORHEXIDINE
     Indication: PRODUCT USED FOR UNKNOWN INDICATION
     Dates: start: 19900601, end: 20140821

REACTIONS (3)
  - Blister [None]
  - Swelling [None]
  - Allergy to synthetic fabric [None]

NARRATIVE: CASE EVENT DATE: 20140821
